FAERS Safety Report 6149847-4 (Version None)
Quarter: 2009Q2

REPORT INFORMATION
  Report Type: 
  Country: None (occurrence: None)
  Receive Date: 20090409
  Receipt Date: 20090330
  Transmission Date: 20091009
  Serious: Yes (Other)
  Sender: FDA-Public Use
  Company Number: FR-ELI_LILLY_AND_COMPANY-FR200901003365

PATIENT
  Sex: Female
  Weight: 75 kg

DRUGS (4)
  1. CYMBALTA [Suspect]
     Indication: DEPRESSION
     Dosage: 60 MG, DAILY (1/D)
     Route: 048
     Dates: start: 20081126, end: 20090114
  2. ATARAX [Concomitant]
     Indication: ANXIETY
     Dosage: 25 MG, DAILY (1/D)
     Route: 048
  3. XANAX [Concomitant]
     Indication: ANXIETY
     Dosage: 0.25 MG, UNKNOWN
     Route: 065
  4. XANAX [Concomitant]
     Dosage: 0.5 MG, DAILY (1/D)
     Route: 048
     Dates: start: 20081126, end: 20090114

REACTIONS (2)
  - GAMMA-GLUTAMYLTRANSFERASE INCREASED [None]
  - HEPATOCELLULAR INJURY [None]
